FAERS Safety Report 8985305 (Version 1)
Quarter: 2012Q4

REPORT INFORMATION
  Report Type: 
  Country: US (occurrence: US)
  Receive Date: 20121226
  Receipt Date: 20121226
  Transmission Date: 20130627
  Serious: No
  Sender: FDA-Public Use
  Company Number: US-ABBOTT-12P-163-0890619-00

PATIENT
  Sex: Male

DRUGS (2)
  1. LUPRON DEPOT 45 MG [Suspect]
     Indication: PROSTATE CANCER
     Route: 050
     Dates: start: 201111
  2. CASODEX [Concomitant]
     Indication: PROSTATE CANCER
     Dates: start: 201111

REACTIONS (1)
  - Headache [Not Recovered/Not Resolved]
